FAERS Safety Report 18146802 (Version 2)
Quarter: 2020Q3

REPORT INFORMATION
  Report Type: Spontaneous
  Country: US (occurrence: US)
  Receive Date: 20200813
  Receipt Date: 20200827
  Transmission Date: 20201103
  Serious: Yes (Other)
  Sender: FDA-Public Use
  Company Number: US-TEVA-2020-US-1812696

PATIENT
  Age: 41 Year
  Sex: Female

DRUGS (5)
  1. AZITHROMYCIN ANHYDROUS. [Suspect]
     Active Substance: AZITHROMYCIN ANHYDROUS
     Indication: COVID-19 PNEUMONIA
     Dosage: ADMINISTERED FOR UNKNOWN DAYS DURING PREGNANCY AND THEN FOR 5 DAYS AFTER PREGNANCY
     Route: 065
  2. CEFTRIAXONE. [Suspect]
     Active Substance: CEFTRIAXONE
     Indication: SUPERINFECTION BACTERIAL
     Dosage: ADMINISTERED FOR UNKNOWN DAYS DURING PREGNANCY FOR COVID?19 PNEUMONIA (OFF LABEL) AND THEN FOR 4 ...
     Route: 065
  3. TOCILIZUMAB. [Suspect]
     Active Substance: TOCILIZUMAB
     Indication: COVID-19 PNEUMONIA
     Dosage: TWO DOSES ADMINISTERED AFTER FETAL DEMISE
     Route: 065
  4. CEFTRIAXONE. [Suspect]
     Active Substance: CEFTRIAXONE
     Indication: COVID-19 PNEUMONIA
  5. HYDROXYCHLOROQUINE [Suspect]
     Active Substance: HYDROXYCHLOROQUINE
     Indication: COVID-19 PNEUMONIA
     Dosage: ADMINISTERED FOR UNKNOWN DAYS DURING PREGNANCY AND THEN FOR 3 DAYS AFTER PREGNANCY
     Route: 065

REACTIONS (3)
  - Maternal exposure during pregnancy [Unknown]
  - Foetal death [Unknown]
  - Off label use [Unknown]
